FAERS Safety Report 4971459-6 (Version None)
Quarter: 2006Q2

REPORT INFORMATION
  Report Type: 
  Country: None (occurrence: None)
  Receive Date: 20060413
  Receipt Date: 20060405
  Transmission Date: 20061013
  Serious: Yes (Hospitalization)
  Sender: FDA-Public Use
  Company Number: PHBS2006JP05152

PATIENT
  Age: 14 Year
  Sex: Female

DRUGS (1)
  1. DICLOFENAC [Suspect]
     Indication: PYREXIA
     Dosage: 25 MG/DAY

REACTIONS (6)
  - CONVULSION [None]
  - DELIRIUM [None]
  - DEPRESSED LEVEL OF CONSCIOUSNESS [None]
  - DISORIENTATION [None]
  - DYSARTHRIA [None]
  - ELECTROENCEPHALOGRAM ABNORMAL [None]
